FAERS Safety Report 21451655 (Version 7)
Quarter: 2023Q1

REPORT INFORMATION
  Report Type: Spontaneous
  Country: US (occurrence: US)
  Receive Date: 20221013
  Receipt Date: 20230125
  Transmission Date: 20230418
  Serious: Yes (Other)
  Sender: FDA-Public Use
  Company Number: US-PFIZER INC-202201203580

PATIENT
  Age: 59 Year
  Sex: Female
  Weight: 61.23 kg

DRUGS (2)
  1. ESTRING [Suspect]
     Active Substance: ESTRADIOL
     Indication: Vulvovaginal dryness
     Dosage: 2 MG, EVERY 3 MONTHS (2MG RING INSERTED VAGINALLY FOR 3 MONTHS)
     Route: 067
     Dates: start: 20220401, end: 202206
  2. ESTRING [Suspect]
     Active Substance: ESTRADIOL
     Indication: Dyspareunia
     Dosage: UNK
     Route: 067
     Dates: start: 202207, end: 202209

REACTIONS (6)
  - Pain [Unknown]
  - Screaming [Unknown]
  - Product quality issue [Unknown]
  - Vulvovaginal discomfort [Unknown]
  - Therapeutic product ineffective [Unknown]
  - Injury [Unknown]

NARRATIVE: CASE EVENT DATE: 20220101
